FAERS Safety Report 5165763-9 (Version None)
Quarter: 2006Q4

REPORT INFORMATION
  Report Type: 
  Country: None (occurrence: None)
  Receive Date: 20061128
  Receipt Date: 20061023
  Transmission Date: 20070319
  Serious: Yes (Hospitalization)
  Sender: FDA-Public Use
  Company Number: GXKR2006IL07371

PATIENT
  Sex: 0

DRUGS (1)
  1. PARACETAMOL [Suspect]
     Dosage: UNKNOWN
     Route: 065

REACTIONS (2)
  - DRUG TOXICITY [None]
  - MEDICATION ERROR [None]
